FAERS Safety Report 15343886 (Version 1)
Quarter: 2018Q3

REPORT INFORMATION
  Report Type: Spontaneous
  Country: GB (occurrence: GB)
  Receive Date: 20180903
  Receipt Date: 20180903
  Transmission Date: 20181010
  Serious: Yes (Hospitalization, Other)
  Sender: FDA-Public Use
  Company Number: GB-TEVA-2018-GB-950879

PATIENT
  Age: 29 Year
  Sex: Female
  Weight: 66 kg

DRUGS (3)
  1. FOLIC ACID. [Concomitant]
     Active Substance: FOLIC ACID
     Dates: start: 201607
  2. ONDANSETRON [Concomitant]
     Active Substance: ONDANSETRON
  3. METOCLOPRAMIDE. [Suspect]
     Active Substance: METOCLOPRAMIDE
     Indication: HYPEREMESIS GRAVIDARUM
     Dosage: 30 MILLIGRAM DAILY;
     Route: 048
     Dates: start: 20180104, end: 20180108

REACTIONS (4)
  - Maternal exposure during pregnancy [Unknown]
  - Thrombosis [Unknown]
  - Abortion spontaneous [Unknown]
  - Vaginal haemorrhage [Recovered/Resolved]

NARRATIVE: CASE EVENT DATE: 20180105
